FAERS Safety Report 8553447-6 (Version None)
Quarter: 2012Q3

REPORT INFORMATION
  Report Type: 
  Country: None (occurrence: None)
  Receive Date: 20120725
  Receipt Date: 20120725
  Transmission Date: 20120928
  Serious: No
  Sender: FDA-Public Use
  Company Number: None

PATIENT

DRUGS (1)
  1. FENTANYL [Suspect]

REACTIONS (9)
  - PSYCHOTIC DISORDER [None]
  - DELIRIUM [None]
  - DYSPNOEA [None]
  - APHASIA [None]
  - COMA [None]
  - URINARY TRACT DISORDER [None]
  - EYE MOVEMENT DISORDER [None]
  - PUPIL FIXED [None]
  - MENTAL DISORDER [None]
